FAERS Safety Report 9295511 (Version 1)
Quarter: 2013Q2

REPORT INFORMATION
  Report Type: Spontaneous
  Country: US (occurrence: US)
  Receive Date: 20130517
  Receipt Date: 20130517
  Transmission Date: 20140414
  Serious: No
  Sender: FDA-Public Use
  Company Number: US-BANPHARM-20120438

PATIENT
  Age: 54 Year
  Sex: Male
  Weight: 86.18 kg

DRUGS (5)
  1. IBUPROFEN CAPSULES 200 MG [Suspect]
     Indication: BACK INJURY
     Dosage: 2 DF, QD,
     Route: 048
     Dates: start: 20121106, end: 20121205
  2. EQUATE IBUPROFEN PM [Suspect]
     Dates: start: 20121106, end: 20121205
  3. SYNTHROID 0.125 MG [Concomitant]
  4. AMITRIPTYLINE 50 MG [Concomitant]
  5. SIMVASTATIN 40MG [Concomitant]

REACTIONS (1)
  - Tinnitus [Recovered/Resolved]
